FAERS Safety Report 9056155 (Version 3)
Quarter: 2013Q1

REPORT INFORMATION
  Report Type: Spontaneous
  Country: JP (occurrence: JP)
  Receive Date: 20130205
  Receipt Date: 20130301
  Transmission Date: 20140127
  Serious: No
  Sender: FDA-Public Use
  Company Number: JP-UCBSA-077187

PATIENT
  Age: 65 Year
  Sex: Male

DRUGS (6)
  1. XYZAL [Suspect]
     Indication: HYPERSENSITIVITY
     Route: 048
     Dates: start: 20130110, end: 20130111
  2. LOXONIN [Concomitant]
     Route: 048
  3. MUCOSTA [Concomitant]
     Route: 048
  4. MECOBALAMIN [Concomitant]
     Route: 048
  5. MINEBASE [Concomitant]
     Dosage: UNKNOWN DOSE
     Route: 048
  6. PRANLUKAST [Concomitant]
     Dosage: UNKNOWN DOSE
     Route: 048

REACTIONS (2)
  - Arrhythmia [Recovered/Resolved]
  - Palpitations [Recovered/Resolved]
